FAERS Safety Report 7592973-3 (Version None)
Quarter: 2011Q3

REPORT INFORMATION
  Report Type: 
  Country: None (occurrence: None)
  Receive Date: 20110706
  Receipt Date: 20110629
  Transmission Date: 20111222
  Serious: Yes (Other)
  Sender: FDA-Public Use
  Company Number: US-GLAXOSMITHKLINE-A0933894A

PATIENT
  Age: 54 Year
  Sex: Female

DRUGS (7)
  1. MULTI-VITAMIN [Concomitant]
  2. IMIPRAMINE [Concomitant]
  3. SERTRALINE HYDROCHLORIDE [Concomitant]
  4. VALTREX [Suspect]
     Indication: GENITAL HERPES
     Dosage: 500MG TWICE PER DAY
     Route: 048
     Dates: start: 20010101
  5. FUROSEMIDE [Concomitant]
  6. BACLOFEN [Concomitant]
  7. CELEBREX [Concomitant]

REACTIONS (7)
  - DIPLEGIA [None]
  - BOWEL MOVEMENT IRREGULARITY [None]
  - ABNORMAL FAECES [None]
  - PRODUCT QUALITY ISSUE [None]
  - NECK PAIN [None]
  - ANXIETY [None]
  - ANORECTAL DISCOMFORT [None]
